FAERS Safety Report 5302772-0 (Version None)
Quarter: 2007Q1

REPORT INFORMATION
  Report Type: 
  Country: None (occurrence: None)
  Receive Date: 20070201
  Receipt Date: 20061127
  Transmission Date: 20070707
  Serious: No
  Sender: FDA-Public Use
  Company Number: 2006PV025912

PATIENT
  Age: 59 Year
  Sex: Female
  Weight: 90.7194 kg

DRUGS (11)
  1. BYETTA [Suspect]
     Indication: DIABETES MELLITUS NON-INSULIN-DEPENDENT
     Dosage: SEE IMAGE
     Route: 058
     Dates: start: 20060801, end: 20060901
  2. BYETTA [Suspect]
     Indication: DIABETES MELLITUS NON-INSULIN-DEPENDENT
     Dosage: SEE IMAGE
     Route: 058
     Dates: start: 20060901
  3. CRESTOR [Suspect]
     Indication: BLOOD CHOLESTEROL
     Dates: start: 20060101, end: 20060101
  4. LIPITOR [Suspect]
     Indication: BLOOD CHOLESTEROL
     Dates: start: 20060101, end: 20060101
  5. ZETIA [Suspect]
     Indication: BLOOD CHOLESTEROL
     Dates: start: 20060101, end: 20060101
  6. ACTOS [Concomitant]
  7. AVALIDE [Concomitant]
  8. TOPROL-XL [Concomitant]
  9. MOBIC [Concomitant]
  10. CLONIDINE [Concomitant]
  11. PREMPRO [Concomitant]

REACTIONS (8)
  - CHILLS [None]
  - CONDITION AGGRAVATED [None]
  - FEELING COLD [None]
  - MUSCULAR WEAKNESS [None]
  - MYALGIA [None]
  - NAUSEA [None]
  - TREMOR [None]
  - WEIGHT DECREASED [None]
